FAERS Safety Report 16169171 (Version 1)
Quarter: 2019Q2

REPORT INFORMATION
  Report Type: Spontaneous
  Country: US (occurrence: US)
  Receive Date: 20190406
  Receipt Date: 20190406
  Transmission Date: 20190711
  Serious: Yes (Life-Threatening, Hospitalization, Disabling, Other)
  Sender: FDA-Public Use
  Company Number: None

PATIENT
  Age: 68 Year
  Sex: Female
  Weight: 54 kg

DRUGS (11)
  1. CURCUMIN [Concomitant]
     Active Substance: CURCUMIN
  2. MULTIVITAMN [Concomitant]
  3. CLONAZEPAM. [Concomitant]
     Active Substance: CLONAZEPAM
  4. LIOTHYRONINE [Concomitant]
     Active Substance: LIOTHYRONINE
  5. ESTROGEN [Concomitant]
     Active Substance: ESTROGENS
  6. CARBIDOPA/LEVDOPA [Concomitant]
  7. IRON [Concomitant]
     Active Substance: IRON
  8. MAGNESIUM [Concomitant]
     Active Substance: MAGNESIUM
  9. CLONAZEPAM. [Suspect]
     Active Substance: CLONAZEPAM
     Indication: RESTLESS LEGS SYNDROME
     Dosage: ?          QUANTITY:60 CAPSULE(S);?
     Route: 048
  10. LDN [Concomitant]
     Active Substance: NALTREXONE
  11. PROGESTERONE. [Concomitant]
     Active Substance: PROGESTERONE

REACTIONS (16)
  - Dermatitis [None]
  - Chills [None]
  - Phonophobia [None]
  - Brain injury [None]
  - Photophobia [None]
  - Hypothyroidism [None]
  - Musculoskeletal stiffness [None]
  - Intraocular pressure increased [None]
  - Bedridden [None]
  - Acute myocardial infarction [None]
  - Pyrexia [None]
  - Renal failure [None]
  - Drug interaction [None]
  - Road traffic accident [None]
  - Migraine [None]
  - Neoplasm malignant [None]

NARRATIVE: CASE EVENT DATE: 20121005
